FAERS Safety Report 6867200-2 (Version None)
Quarter: 2010Q2

REPORT INFORMATION
  Report Type: 
  Country: None (occurrence: None)
  Receive Date: 20100528
  Receipt Date: 20100422
  Transmission Date: 20101027
  Serious: No
  Sender: FDA-Public Use
  Company Number: 2010051948

PATIENT

DRUGS (1)
  1. TOVIAZ [Suspect]
     Dosage: ORAL
     Route: 048

REACTIONS (2)
  - DRY EYE [None]
  - DRY MOUTH [None]
